FAERS Safety Report 9407300 (Version 1)
Quarter: 2013Q3

REPORT INFORMATION
  Report Type: Spontaneous
  Country: US (occurrence: US)
  Receive Date: 20130718
  Receipt Date: 20130718
  Transmission Date: 20140515
  Serious: Yes (Other)
  Sender: FDA-Public Use
  Company Number: US-BANPHARM-20131489

PATIENT
  Age: 89 Year
  Sex: Male
  Weight: 79.38 kg

DRUGS (5)
  1. ALEVE LIQUID GELS 220 MG [Suspect]
     Dosage: 2 DF, QD,
     Route: 048
     Dates: start: 2011, end: 20130709
  2. LASIX [Concomitant]
  3. BAYER ASPIRIN 81 MG [Concomitant]
  4. LOSARTAN POTASSIUM [Concomitant]
  5. COZAAR [Concomitant]

REACTIONS (2)
  - Amnesia [Not Recovered/Not Resolved]
  - Incorrect drug administration duration [Recovered/Resolved]
